FAERS Safety Report 6171613-4 (Version None)
Quarter: 2009Q2

REPORT INFORMATION
  Report Type: 
  Country: None (occurrence: None)
  Receive Date: 20090429
  Receipt Date: 20090420
  Transmission Date: 20091009
  Serious: Yes (Other)
  Sender: FDA-Public Use
  Company Number: GR-AVENTIS-200912202EU

PATIENT
  Age: 84 Year
  Sex: Female

DRUGS (4)
  1. INDAPAMIDE [Suspect]
  2. PROPAFENONE HCL [Suspect]
  3. ACENOCOUMAROL [Suspect]
  4. LISINOPRIL [Suspect]

REACTIONS (1)
  - PEMPHIGOID [None]
